FAERS Safety Report 7911575-X (Version None)
Quarter: 2011Q4

REPORT INFORMATION
  Report Type: 
  Country: None (occurrence: None)
  Receive Date: 20111114
  Receipt Date: 20111103
  Transmission Date: 20120403
  Serious: Yes (Hospitalization)
  Sender: FDA-Public Use
  Company Number: US-JNJFOC-20111102037

PATIENT
  Sex: Male

DRUGS (1)
  1. ZYTIGA [Suspect]
     Indication: PROSTATE CANCER
     Route: 048
     Dates: start: 20110913, end: 20111017

REACTIONS (10)
  - PROSTATE CANCER [None]
  - PARAESTHESIA [None]
  - WEIGHT DECREASED [None]
  - OEDEMA PERIPHERAL [None]
  - SPINAL CORD COMPRESSION [None]
  - URINARY INCONTINENCE [None]
  - DECREASED APPETITE [None]
  - PAIN [None]
  - FATIGUE [None]
  - MONOPLEGIA [None]
